FAERS Safety Report 17731485 (Version 5)
Quarter: 2022Q1

REPORT INFORMATION
  Report Type: Report from Study
  Country: US (occurrence: US)
  Receive Date: 20200430
  Receipt Date: 20220324
  Transmission Date: 20220423
  Serious: Yes (Hospitalization)
  Sender: FDA-Public Use
  Company Number: US-NOVARTISPH-NVSC2020US114202

PATIENT
  Sex: Female

DRUGS (1)
  1. MAYZENT [Suspect]
     Active Substance: SIPONIMOD
     Indication: Infection
     Dosage: UNK
     Route: 065

REACTIONS (4)
  - Infection [Unknown]
  - Kidney infection [Unknown]
  - Gait disturbance [Unknown]
  - Product use in unapproved indication [Unknown]
